FAERS Safety Report 14567932 (Version 3)
Quarter: 2019Q3

REPORT INFORMATION
  Report Type: Spontaneous
  Country: US (occurrence: US)
  Receive Date: 20180223
  Receipt Date: 20190701
  Transmission Date: 20191004
  Serious: Yes (Hospitalization, Other)
  Sender: FDA-Public Use
  Company Number: US-PFIZER INC-2018073130

PATIENT
  Age: 86 Year
  Sex: Female
  Weight: 63.5 kg

DRUGS (17)
  1. LYRICA [Suspect]
     Active Substance: PREGABALIN
     Dosage: 50 MG, 1X/DAY (AT BED TIME)
     Route: 048
  2. VERAPAMIL [Concomitant]
     Active Substance: VERAPAMIL HYDROCHLORIDE
     Indication: BLOOD PRESSURE ABNORMAL
     Dosage: 240 MG, 1X/DAY (240MG CAPSULE BY MOUTH ONCE DAILY)
     Route: 048
  3. HYDROCHLOROTHIAZIDE. [Concomitant]
     Active Substance: HYDROCHLOROTHIAZIDE
     Indication: BLOOD PRESSURE ABNORMAL
     Dosage: 25MG TABLETS.  1/2 TABLET DAILY BY MOUTH
     Route: 048
  4. VITAMIN B12 [Concomitant]
     Active Substance: CYANOCOBALAMIN
     Indication: SUPPLEMENTATION THERAPY
     Dosage: 1000 MG, 1X/DAY (1000MG TABLET BY MOUTH ONCE DAILY)
     Route: 048
  5. BARLEY GREEN [Concomitant]
     Indication: SUPPLEMENTATION THERAPY
     Dosage: SOMETIMES TAKES CAPSULES AND SOMETIMES TAKES POWDER
     Dates: start: 1987
  6. LOSARTAN POTASSIUM. [Concomitant]
     Active Substance: LOSARTAN POTASSIUM
     Indication: BLOOD PRESSURE ABNORMAL
     Dosage: 50 MG, DAILY
     Route: 048
  7. DELZICOL [Concomitant]
     Active Substance: MESALAMINE
     Dosage: UNK
     Dates: start: 2010
  8. RESTORE [Concomitant]
     Active Substance: GLYCERIN
     Indication: EYE DISORDER
     Dosage: 1 DF, DAILY (1 PILL DAILY BY MOUTH)
     Route: 048
     Dates: start: 2017
  9. ALOE VERA [Concomitant]
     Active Substance: ALOE VERA LEAF
     Dosage: 2 DF, 2X/DAY
  10. LYRICA [Suspect]
     Active Substance: PREGABALIN
     Indication: HEADACHE
     Dosage: 50 MG, UNK
     Route: 048
  11. DELZICOL [Concomitant]
     Active Substance: MESALAMINE
     Indication: GASTROINTESTINAL DISORDER
     Dosage: 800 MG, 2X/DAY (400MG CAPSULE. 2 CAPSULES BY MOUTH TWICE DAILY)
     Route: 048
     Dates: start: 2012
  12. ASPIRIN. [Concomitant]
     Active Substance: ASPIRIN
     Indication: PROPHYLAXIS
     Dosage: 81 MG, DAILY (81MG TABLET BY MOUTH DAILY)
     Route: 048
     Dates: start: 2015
  13. LYRICA [Suspect]
     Active Substance: PREGABALIN
     Indication: NEUROPATHY PERIPHERAL
     Dosage: 75 MG, 1X/DAY  (AT NIGHT TIME)
     Route: 048
     Dates: start: 201801
  14. GLUCOSAMINE CHONDROITIN MSM [Concomitant]
     Indication: ARTHROPATHY
     Dosage: 1 DF, DAILY (1 TABLET DAILY BY MOUTH)
     Route: 048
     Dates: start: 2010
  15. PROBIOTIC ACIDOPHILUS [Concomitant]
     Active Substance: LACTOBACILLUS ACIDOPHILUS
     Indication: GASTROINTESTINAL DISORDER
     Dosage: 1 DF, 2X/DAY (1 CAPSULE TWICE DAILY WITH FOOD)
     Dates: start: 2010
  16. POTASSIUM [Concomitant]
     Active Substance: POTASSIUM
     Indication: SUPPLEMENTATION THERAPY
     Dosage: 99 MG, 1X/DAY (99MG TABLET BY MOUTH ONCE DAILY)
     Route: 048
  17. VITAMIN D3 [Concomitant]
     Active Substance: CHOLECALCIFEROL
     Indication: SUPPLEMENTATION THERAPY
     Dosage: 125 MG, 1X/DAY (125MG SOFT GEL BY MOUTH ONCE DAILY)
     Route: 048

REACTIONS (2)
  - Cataract [Recovered/Resolved]
  - Oxygen saturation decreased [Recovered/Resolved]

NARRATIVE: CASE EVENT DATE: 201801
